FAERS Safety Report 17827279 (Version 1)
Quarter: 2020Q2

REPORT INFORMATION
  Report Type: Spontaneous
  Country: CA (occurrence: CA)
  Receive Date: 20200527
  Receipt Date: 20200527
  Transmission Date: 20200714
  Serious: Yes (Other)
  Sender: FDA-Public Use
  Company Number: CA-ROCHE-2604516

PATIENT
  Age: 16 Year
  Sex: Male

DRUGS (1)
  1. SOMATROPIN. [Suspect]
     Active Substance: SOMATROPIN
     Indication: SILVER-RUSSELL SYNDROME
     Route: 065

REACTIONS (3)
  - Presyncope [Not Recovered/Not Resolved]
  - Increased appetite [Not Recovered/Not Resolved]
  - Hypoglycaemia [Not Recovered/Not Resolved]
